FAERS Safety Report 24056647 (Version 1)
Quarter: 2024Q3

REPORT INFORMATION
  Report Type: Spontaneous
  Country: US (occurrence: US)
  Receive Date: 20240705
  Receipt Date: 20240705
  Transmission Date: 20241016
  Serious: Yes (Other)
  Sender: MERCK
  Company Number: US-009507513-2208USA001760

PATIENT
  Age: 75 Month
  Sex: Female

DRUGS (6)
  1. TEMODAR [Suspect]
     Active Substance: TEMOZOLOMIDE
     Indication: Medulloblastoma recurrent
     Dosage: 150 MILLIGRAM/SQ. METER, DAYS 1-5
     Route: 048
  2. CYCLOPHOSPHAMIDE [Suspect]
     Active Substance: CYCLOPHOSPHAMIDE
     Indication: Medulloblastoma recurrent
     Dosage: 1500 MILLIGRAM/SQ. METER/ DOSE DAYS 1,2
     Route: 042
  3. IRINOTECAN [Suspect]
     Active Substance: IRINOTECAN
     Indication: Medulloblastoma recurrent
     Dosage: 125 MILLIGRAM/SQ. METER/ DOSE DAYS 1,8
     Route: 042
  4. ETOPOSIDE [Suspect]
     Active Substance: ETOPOSIDE
     Indication: Medulloblastoma recurrent
     Dosage: 50 MILLIGRAM/SQ. METER/ DOSE DAYS 1-7
     Route: 048
  5. CARBOPLATIN [Concomitant]
     Active Substance: CARBOPLATIN
     Indication: Medulloblastoma recurrent
  6. THIOTEPA [Concomitant]
     Active Substance: THIOTEPA
     Indication: Medulloblastoma recurrent

REACTIONS (3)
  - Febrile neutropenia [Unknown]
  - Myelosuppression [Unknown]
  - Product use in unapproved indication [Unknown]
